FAERS Safety Report 21614988 (Version 1)
Quarter: 2022Q4

REPORT INFORMATION
  Report Type: Spontaneous
  Country: NL (occurrence: NL)
  Receive Date: 20221118
  Receipt Date: 20221118
  Transmission Date: 20230113
  Serious: Yes (Life-Threatening)
  Sender: FDA-Public Use
  Company Number: None

PATIENT
  Sex: Male

DRUGS (5)
  1. CIPROFLOXACIN [Suspect]
     Active Substance: CIPROFLOXACIN
     Indication: Urinary tract infection
     Dosage: FORM STRENGTH : 500MG , BRAND NAME NOT SPECIFIED ,DURATION :7 DAYS
     Dates: start: 20220603, end: 20220610
  2. MESALAMINE [Suspect]
     Active Substance: MESALAMINE
     Indication: Colitis
     Dosage: 1D1  ,MGA BRAND NAME NOT SPECIFIED ,UNIT DOSE :3 GRAM ,FORM STRENGTH 3 GRAM ,FREQUENCY TIME :1 DAYS
     Dates: start: 20220604, end: 20220613
  3. BUDESONIDE [Concomitant]
     Active Substance: BUDESONIDE
     Indication: Product used for unknown indication
     Dosage: 2 MG/DOSE (MILLIGRAMS PER DOSE), BRAND NAME NOT SPECIFIED,THERAPY START AND DATE :ASKU
     Route: 054
  4. METFORMIN HYDROCHLORIDE [Concomitant]
     Active Substance: METFORMIN HYDROCHLORIDE
     Indication: Product used for unknown indication
     Dosage: BRAND NAME NOT SPECIFIED,THERAPY START AND END DATE :ASKU
  5. ROSUVASTATIN [Concomitant]
     Active Substance: ROSUVASTATIN
     Indication: Product used for unknown indication
     Dosage: FORM STRENGTH: 5MG, BRAND NAME NOT SPECIFIED ,THERAPY START AND END DATE :ASKU

REACTIONS (2)
  - Aspergillus infection [Recovering/Resolving]
  - Granulocytopenia [Recovering/Resolving]
